FAERS Safety Report 13607191 (Version 2)
Quarter: 2017Q3

REPORT INFORMATION
  Report Type: Spontaneous
  Country: DE (occurrence: DE)
  Receive Date: 20170602
  Receipt Date: 20170725
  Transmission Date: 20171127
  Serious: Yes (Life-Threatening, Hospitalization, Other)
  Sender: FDA-Public Use
  Company Number: PHHY2017DE035648

PATIENT
  Sex: Female
  Weight: 55 kg

DRUGS (5)
  1. REVOLADE [Suspect]
     Active Substance: ELTROMBOPAG
     Dosage: 25 MG, UNK
     Route: 065
     Dates: start: 20170209, end: 20170216
  2. PREDNISOLONE. [Concomitant]
     Active Substance: PREDNISOLONE
     Indication: THROMBOCYTOPENIA
     Dosage: 5 MG, UNK
     Route: 065
  3. REVOLADE [Suspect]
     Active Substance: ELTROMBOPAG
     Indication: THROMBOCYTOPENIA
     Dosage: 50 MG, UNK
     Route: 065
     Dates: start: 20170117, end: 20170208
  4. REVOLADE [Suspect]
     Active Substance: ELTROMBOPAG
     Dosage: 12.5 MG, UNK
     Route: 065
     Dates: start: 20170217, end: 20170323
  5. RAMIPRIL. [Concomitant]
     Active Substance: RAMIPRIL
     Indication: HYPERTENSION
     Dosage: 5 MG, UNK (SINCE YEARS)
     Route: 048

REACTIONS (7)
  - Cor pulmonale chronic [Recovered/Resolved with Sequelae]
  - Pulmonary embolism [Recovering/Resolving]
  - Ventricular hypertrophy [Recovered/Resolved with Sequelae]
  - Dyspnoea [Unknown]
  - Thrombosis [Recovered/Resolved]
  - Dilatation ventricular [Unknown]
  - Wrong technique in product usage process [Unknown]

NARRATIVE: CASE EVENT DATE: 20170216
